FAERS Safety Report 14900549 (Version 2)
Quarter: 2018Q2

REPORT INFORMATION
  Report Type: Spontaneous
  Country: US (occurrence: US)
  Receive Date: 20180516
  Receipt Date: 20180613
  Transmission Date: 20180711
  Serious: No
  Sender: FDA-Public Use
  Company Number: US-PFIZER INC-2018196592

PATIENT
  Sex: Female

DRUGS (1)
  1. QUILLIVANT XR [Suspect]
     Active Substance: METHYLPHENIDATE HYDROCHLORIDE
     Indication: EMOTIONAL DISORDER
     Dosage: UNK

REACTIONS (2)
  - Drug ineffective [Unknown]
  - Product solubility abnormal [Unknown]
